FAERS Safety Report 9775110 (Version 2)
Quarter: 2014Q1

REPORT INFORMATION
  Report Type: Spontaneous
  Country: FR (occurrence: FR)
  Receive Date: 20131220
  Receipt Date: 20140107
  Transmission Date: 20141002
  Serious: Yes (Other)
  Sender: FDA-Public Use
  Company Number: FR-JNJFOC-20131210511

PATIENT
  Sex: Male

DRUGS (1)
  1. XARELTO [Suspect]
     Indication: PRODUCT USED FOR UNKNOWN INDICATION
     Route: 048

REACTIONS (3)
  - Post procedural haematoma [Unknown]
  - Post procedural haemorrhage [Recovered/Resolved]
  - Skin flap necrosis [Recovering/Resolving]
